FAERS Safety Report 4387833-5 (Version None)
Quarter: 2004Q2

REPORT INFORMATION
  Report Type: 
  Country: None (occurrence: None)
  Receive Date: 20040630
  Receipt Date: 20040617
  Transmission Date: 20050107
  Serious: Yes (Other)
  Sender: FDA-Public Use
  Company Number: PHBS2004US08401

PATIENT
  Age: 23 Year
  Sex: Male

DRUGS (1)
  1. TEGRETOL [Suspect]
     Indication: BIPOLAR DISORDER

REACTIONS (4)
  - ADVERSE EVENT [None]
  - DRUG INEFFECTIVE [None]
  - JOINT DISLOCATION [None]
  - NECK INJURY [None]
